FAERS Safety Report 14319066 (Version 2)
Quarter: 2018Q1

REPORT INFORMATION
  Report Type: Spontaneous
  Country: ES (occurrence: ES)
  Receive Date: 20171222
  Receipt Date: 20180214
  Transmission Date: 20180509
  Serious: Yes (Other)
  Sender: FDA-Public Use
  Company Number: ES-SA-2017SA251565

PATIENT
  Sex: Female

DRUGS (20)
  1. AMLODIPINE [Suspect]
     Active Substance: AMLODIPINE BESYLATE
     Dosage: STRENGTH: 5MG
     Route: 065
     Dates: start: 20160901
  2. DIAZEPAM/SULPIRIDE [Suspect]
     Active Substance: DIAZEPAM\SULPIRIDE
     Route: 065
     Dates: start: 20160901
  3. GLIBENCLAMIDE [Suspect]
     Active Substance: GLYBURIDE
     Route: 065
     Dates: start: 20160901
  4. ESCITALOPRAM [Suspect]
     Active Substance: ESCITALOPRAM OXALATE
     Route: 065
     Dates: start: 20160901
  5. METOCLOPRAMIDE. [Concomitant]
     Active Substance: METOCLOPRAMIDE
     Indication: PRODUCT USED FOR UNKNOWN INDICATION
     Route: 065
     Dates: start: 20161125
  6. AMITRIPTYLINE [Suspect]
     Active Substance: AMITRIPTYLINE
     Indication: HEADACHE
     Route: 065
     Dates: start: 20170509, end: 20170516
  7. DIAZEPAM. [Suspect]
     Active Substance: DIAZEPAM
     Route: 065
     Dates: start: 20170901
  8. AMITRIPTYLINE [Suspect]
     Active Substance: AMITRIPTYLINE
     Indication: HEADACHE
     Route: 065
     Dates: start: 20170516
  9. TOPIRAMATE. [Suspect]
     Active Substance: TOPIRAMATE
     Route: 065
     Dates: start: 20170420, end: 20170509
  10. LORMETAZEPAM [Suspect]
     Active Substance: LORMETAZEPAM
     Route: 065
     Dates: start: 20160901, end: 20160930
  11. OMEPRAZOLE. [Suspect]
     Active Substance: OMEPRAZOLE
     Route: 065
     Dates: start: 20160901, end: 20161125
  12. PARACETAMOL [Suspect]
     Active Substance: ACETAMINOPHEN
     Route: 065
     Dates: start: 20160901, end: 20161118
  13. ENALAPRIL/HYDROCHLOROTHIAZIDE [Suspect]
     Active Substance: ENALAPRIL MALEATE\HYDROCHLOROTHIAZIDE
     Dosage: STRENGTH: 20/12.5 MG
     Route: 065
     Dates: start: 20160901
  14. NAPROXEN. [Suspect]
     Active Substance: NAPROXEN
     Route: 065
     Dates: start: 20160901, end: 20161118
  15. TRAMADOL HYDROCHLORIDE/PARACETAMOL [Suspect]
     Active Substance: ACETAMINOPHEN\TRAMADOL HYDROCHLORIDE
     Dosage: STRENGTH: 37.5/325 MG
     Route: 065
     Dates: start: 20161118
  16. AMITRIPTYLINE [Suspect]
     Active Substance: AMITRIPTYLINE
     Indication: HEADACHE
     Route: 065
     Dates: start: 20161118
  17. SIMVASTATIN. [Suspect]
     Active Substance: SIMVASTATIN
     Route: 065
     Dates: start: 20170420
  18. SIMVASTATIN. [Suspect]
     Active Substance: SIMVASTATIN
     Route: 065
     Dates: start: 20160901, end: 20170420
  19. TOPIRAMATE. [Suspect]
     Active Substance: TOPIRAMATE
     Dosage: STRENGTH: 50 MG
     Route: 065
     Dates: start: 20170203, end: 20170420
  20. DIAZEPAM. [Suspect]
     Active Substance: DIAZEPAM
     Route: 065
     Dates: start: 20160930, end: 20161021

REACTIONS (11)
  - Insomnia [Recovering/Resolving]
  - Pain in extremity [Recovered/Resolved]
  - Drug ineffective [Unknown]
  - Arthralgia [None]
  - Treatment noncompliance [Unknown]
  - Headache [Not Recovered/Not Resolved]
  - Fall [Unknown]
  - Depression [Recovering/Resolving]
  - Dizziness [Unknown]
  - Myalgia [None]
  - Somnolence [Recovering/Resolving]

NARRATIVE: CASE EVENT DATE: 201610
